FAERS Safety Report 8320514-1 (Version None)
Quarter: 2012Q2

REPORT INFORMATION
  Report Type: 
  Country: None (occurrence: None)
  Receive Date: 20120427
  Receipt Date: 20120427
  Transmission Date: 20120825
  Serious: No
  Sender: FDA-Public Use
  Company Number: None

PATIENT
  Age: 37 Year
  Sex: Female
  Weight: 117.93 kg

DRUGS (1)
  1. GAMMAGARD [Suspect]
     Indication: IMMUNODEFICIENCY COMMON VARIABLE
     Dosage: 70G IV
     Route: 042
     Dates: start: 20120426, end: 20120426

REACTIONS (7)
  - DYSPNOEA [None]
  - FLUSHING [None]
  - CHEST DISCOMFORT [None]
  - DRUG HYPERSENSITIVITY [None]
  - ERYTHEMA [None]
  - VOMITING [None]
  - BLOOD PRESSURE DECREASED [None]
